FAERS Safety Report 26078508 (Version 1)
Quarter: 2025Q4

REPORT INFORMATION
  Report Type: Spontaneous
  Country: GB (occurrence: GB)
  Receive Date: 20251123
  Receipt Date: 20251123
  Transmission Date: 20260119
  Serious: Yes (Hospitalization, Other)
  Sender: AUROBINDO
  Company Number: GB-MHRA-MIDB-6dd42a8c-2b5f-4966-821f-60ec11e855d9

PATIENT
  Age: 87 Year
  Sex: Male

DRUGS (8)
  1. ACYCLOVIR [Suspect]
     Active Substance: ACYCLOVIR
     Indication: Product used for unknown indication
     Dosage: POSSIBLY 800MG FIVE TIMES A DAY BUT PT UNABLE TO CONFIRM DOSE
     Route: 065
  2. DOCUSATE SODIUM [Concomitant]
     Active Substance: DOCUSATE SODIUM
     Indication: Product used for unknown indication
     Route: 065
  3. SENNA [Concomitant]
     Active Substance: SENNOSIDES
     Indication: Product used for unknown indication
     Route: 065
  4. LANSOPRAZOLE [Concomitant]
     Active Substance: LANSOPRAZOLE
     Indication: Product used for unknown indication
     Route: 065
  5. CHOLECALCIFEROL [Concomitant]
     Active Substance: CHOLECALCIFEROL
     Indication: Product used for unknown indication
     Route: 065
  6. CALCITRIOL [Concomitant]
     Active Substance: CALCITRIOL
     Indication: Product used for unknown indication
     Route: 065
  7. ASPIRIN [Concomitant]
     Active Substance: ASPIRIN
     Indication: Product used for unknown indication
     Route: 065
  8. ATORVASTATIN [Concomitant]
     Active Substance: ATORVASTATIN
     Indication: Product used for unknown indication
     Route: 065

REACTIONS (3)
  - Confusional state [Recovered/Resolved]
  - Hallucination [Recovered/Resolved]
  - Gait disturbance [Recovered/Resolved]

NARRATIVE: CASE EVENT DATE: 20250828
